FAERS Safety Report 23073813 (Version 1)
Quarter: 2023Q4

REPORT INFORMATION
  Report Type: Spontaneous
  Country: US (occurrence: US)
  Receive Date: 20231017
  Receipt Date: 20231017
  Transmission Date: 20240109
  Serious: Yes (Hospitalization)
  Sender: FDA-Public Use
  Company Number: US-BAYER-2023A141585

PATIENT
  Age: 25 Year
  Sex: Male

DRUGS (4)
  1. ADEMPAS [Suspect]
     Active Substance: RIOCIGUAT
     Indication: Pulmonary hypertension
     Dosage: UNK
  2. ADEMPAS [Suspect]
     Active Substance: RIOCIGUAT
     Indication: Pulmonary hypertension
     Dosage: 2 MG, TID
     Route: 048
     Dates: start: 20210331
  3. WARFARIN [Suspect]
     Active Substance: WARFARIN
  4. OPSUMIT [Concomitant]
     Active Substance: MACITENTAN

REACTIONS (5)
  - Peripheral swelling [None]
  - Pain [None]
  - Haematoma [None]
  - Compartment syndrome [None]
  - Wound closure [None]

NARRATIVE: CASE EVENT DATE: 20230904
